FAERS Safety Report 5054998-1 (Version None)
Quarter: 2006Q3

REPORT INFORMATION
  Report Type: 
  Country: None (occurrence: None)
  Receive Date: 20060719
  Receipt Date: 20060704
  Transmission Date: 20061208
  Serious: Yes (Hospitalization, Disabling)
  Sender: FDA-Public Use
  Company Number: FR-GLAXOSMITHKLINE-B0430569A

PATIENT
  Age: 4 Year
  Sex: Female
  Weight: 12 kg

DRUGS (7)
  1. VENTOLIN [Suspect]
     Indication: ASTHMA
     Dates: start: 20020101, end: 20060301
  2. FLIXOTIDE [Suspect]
     Indication: ASTHMA
     Dosage: 50MCG PER DAY
     Route: 055
     Dates: start: 20020101, end: 20060301
  3. MOTILIUM [Suspect]
     Route: 048
  4. VFEND [Suspect]
     Dosage: 50MG TWICE PER DAY
     Route: 048
     Dates: start: 20040501
  5. BACTRIM [Suspect]
     Indication: INFECTION PROPHYLAXIS
     Dosage: 5ML THREE TIMES PER WEEK
     Route: 048
     Dates: start: 20020501
  6. GRANOCYTE [Suspect]
     Dosage: 13.4IU6 THREE TIMES PER WEEK
     Route: 058
     Dates: start: 20010101
  7. GAVISCON [Concomitant]

REACTIONS (6)
  - CRYOGLOBULINAEMIA [None]
  - CUTANEOUS VASCULITIS [None]
  - ECCHYMOSIS [None]
  - OEDEMA PERIPHERAL [None]
  - PAIN IN EXTREMITY [None]
  - TOE AMPUTATION [None]
